FAERS Safety Report 8974327 (Version 1)
Quarter: 2012Q4

REPORT INFORMATION
  Report Type: 
  Country: US (occurrence: US)
  Receive Date: 20121219
  Receipt Date: 20121219
  Transmission Date: 20130627
  Serious: No
  Sender: FDA-Public Use
  Company Number: US-009507513-1212USA004560

PATIENT
  Sex: Male

DRUGS (3)
  1. DULERA [Suspect]
     Indication: ASTHMA
     Dosage: 2 DF, bid
     Route: 055
     Dates: start: 201207
  2. DULERA [Suspect]
     Dosage: UNK
     Dates: start: 201207
  3. GLUCOPHAGE [Concomitant]

REACTIONS (2)
  - Dyspepsia [Unknown]
  - Overdose [Unknown]
